FAERS Safety Report 6587924-4 (Version None)
Quarter: 2010Q1

REPORT INFORMATION
  Report Type: 
  Country: None (occurrence: None)
  Receive Date: 20100218
  Receipt Date: 20100208
  Transmission Date: 20100710
  Serious: Yes (Hospitalization)
  Sender: FDA-Public Use
  Company Number: FR-ELI_LILLY_AND_COMPANY-FR201002001988

PATIENT
  Age: 65 Year
  Sex: Male

DRUGS (9)
  1. ZYPREXA [Suspect]
     Dosage: UNK, UNKNOWN
     Route: 065
     Dates: start: 20090701, end: 20090701
  2. ARTANE [Concomitant]
     Dosage: 5 MG, 2/D
     Route: 048
  3. TRANXENE [Concomitant]
     Dosage: 10 MG, 3/D
     Route: 048
  4. TERCIAN [Concomitant]
     Dosage: 100 MG, DAILY (1/D)
     Route: 048
     Dates: end: 20090701
  5. LEVOTHYROXINE SODIUM [Concomitant]
     Dosage: 125 UG, DAILY (1/D)
     Route: 048
  6. ALLOPURINOL [Concomitant]
     Dosage: 1 DOSE, DAILY (1/D)
     Route: 065
  7. ROCALTROL [Concomitant]
     Dosage: UNK, UNKNOWN
     Route: 065
  8. BETAMETHASONE [Concomitant]
     Dosage: UNK, UNKNOWN
     Route: 065
  9. TERALITHE [Concomitant]

REACTIONS (2)
  - MALAISE [None]
  - ORTHOSTATIC HYPOTENSION [None]
